FAERS Safety Report 16530899 (Version 1)
Quarter: 2019Q3

REPORT INFORMATION
  Report Type: Spontaneous
  Country: NZ (occurrence: NZ)
  Receive Date: 20190704
  Receipt Date: 20190704
  Transmission Date: 20191004
  Serious: Yes (Other)
  Sender: FDA-Public Use
  Company Number: PHHY2019NZ150295

PATIENT
  Age: 46 Year
  Sex: Male

DRUGS (5)
  1. DEXAMETHASONE. [Suspect]
     Active Substance: DEXAMETHASONE
     Indication: ENDOPHTHALMITIS
     Dosage: UNK , QH
     Route: 061
  2. DEXAMETHASONE. [Suspect]
     Active Substance: DEXAMETHASONE
     Dosage: UNK , Q2H
     Route: 061
  3. MOXIFLOXACIN. [Suspect]
     Active Substance: MOXIFLOXACIN
     Indication: ENDOPHTHALMITIS
     Dosage: 400 MG, UNK
     Route: 048
  4. CEFTAZIDIME. [Suspect]
     Active Substance: CEFTAZIDIME
     Indication: ENDOPHTHALMITIS
     Route: 031
  5. VANCOMYCIN [Suspect]
     Active Substance: VANCOMYCIN
     Indication: ENDOPHTHALMITIS
     Route: 031

REACTIONS (7)
  - Hypopyon [Unknown]
  - Anterior chamber cell [Unknown]
  - Endophthalmitis [Unknown]
  - Macular oedema [Recovered/Resolved]
  - Corneal deposits [Unknown]
  - Papilloedema [Recovered/Resolved]
  - Product use in unapproved indication [Unknown]
